FAERS Safety Report 5720824-8 (Version None)
Quarter: 2008Q2

REPORT INFORMATION
  Report Type: 
  Country: None (occurrence: None)
  Receive Date: 20080424
  Receipt Date: 20080418
  Transmission Date: 20081010
  Serious: Yes (Other)
  Sender: FDA-Public Use
  Company Number: S08-USA-01508-01

PATIENT
  Age: 47 Year
  Sex: Female

DRUGS (5)
  1. LEXAPRO [Suspect]
     Indication: DEPRESSION
  2. LEXAPRO [Suspect]
     Indication: DEPRESSION
     Dates: end: 20080101
  3. BETASERON [Suspect]
     Indication: MULTIPLE SCLEROSIS
     Dosage: 8 UNK QOD SC
     Route: 058
     Dates: start: 20070710
  4. IV STEROIDS (NOS) [Concomitant]
  5. PREDNISONE TAB [Concomitant]

REACTIONS (1)
  - GRAND MAL CONVULSION [None]
